FAERS Safety Report 25484795 (Version 1)
Quarter: 2025Q2

REPORT INFORMATION
  Report Type: Report from Study
  Country: US (occurrence: US)
  Receive Date: 20250626
  Receipt Date: 20250626
  Transmission Date: 20250717
  Serious: Yes (Hospitalization)
  Sender: ABBVIE
  Company Number: US-ABBVIE-6342334

PATIENT
  Age: 47 Year
  Sex: Female

DRUGS (1)
  1. RINVOQ [Suspect]
     Active Substance: UPADACITINIB
     Indication: Rheumatoid arthritis
     Route: 048
     Dates: start: 20250313

REACTIONS (3)
  - Chest pain [Recovering/Resolving]
  - Pain in extremity [Recovering/Resolving]
  - Fibrin D dimer increased [Unknown]

NARRATIVE: CASE EVENT DATE: 20250101
